FAERS Safety Report 7434904-2 (Version None)
Quarter: 2011Q2

REPORT INFORMATION
  Report Type: 
  Country: None (occurrence: None)
  Receive Date: 20110415
  Receipt Date: 20110404
  Transmission Date: 20111010
  Serious: Yes (Hospitalization)
  Sender: FDA-Public Use
  Company Number: 1000020063

PATIENT
  Age: 76 Year
  Sex: Male
  Weight: 80 kg

DRUGS (3)
  1. EUCREAS (METFORMIN, VILDAGLIPTIN) (METFORMIN, VILDAGLIPTIN) [Concomitant]
  2. DALIRESP [Suspect]
     Indication: CHRONIC OBSTRUCTIVE PULMONARY DISEASE
     Dosage: 500 MCG (500 MCG,1 IN 1 D)
     Dates: start: 20110221
  3. PREDNISOLONE [Concomitant]

REACTIONS (8)
  - SYNCOPE [None]
  - DIZZINESS [None]
  - BLOOD GLUCOSE INCREASED [None]
  - BUNDLE BRANCH BLOCK RIGHT [None]
  - WHEEZING [None]
  - DIARRHOEA [None]
  - WEIGHT DECREASED [None]
  - PALPITATIONS [None]
